FAERS Safety Report 7778840-0 (Version None)
Quarter: 2011Q3

REPORT INFORMATION
  Report Type: 
  Country: None (occurrence: None)
  Receive Date: 20110926
  Receipt Date: 20110922
  Transmission Date: 20111222
  Serious: No
  Sender: FDA-Public Use
  Company Number: US-BAYER-2011-088181

PATIENT
  Age: 47 Year
  Sex: Female

DRUGS (3)
  1. MIRENA [Suspect]
     Dosage: 20 ?G, CONT
     Dates: start: 20110916, end: 20110901
  2. MIRENA [Suspect]
  3. MIRENA [Suspect]
     Dosage: 20 ?G, CONT
     Dates: start: 20110725, end: 20110914

REACTIONS (1)
  - DEVICE EXPULSION [None]
